FAERS Safety Report 4642895-2 (Version None)
Quarter: 2005Q2

REPORT INFORMATION
  Report Type: 
  Country: None (occurrence: None)
  Receive Date: 20050421
  Receipt Date: 20050408
  Transmission Date: 20051028
  Serious: Yes (Other)
  Sender: FDA-Public Use
  Company Number: HQWYE883008APR05

PATIENT

DRUGS (3)
  1. AMIODARONE HCL [Suspect]
     Indication: PROPHYLAXIS
  2. AMIODARONE HCL [Suspect]
     Indication: SUPRAVENTRICULAR TACHYCARDIA
  3. AMIODARONE HCL [Suspect]
     Indication: VENTRICULAR TACHYCARDIA

REACTIONS (5)
  - HYPERTHYROIDISM [None]
  - HYPOTHYROIDISM [None]
  - THYROID DISORDER [None]
  - THYROID FUNCTION TEST ABNORMAL [None]
  - THYROTOXIC CRISIS [None]
